FAERS Safety Report 7249588-6 (Version None)
Quarter: 2011Q1

REPORT INFORMATION
  Report Type: 
  Country: None (occurrence: None)
  Receive Date: 20110128
  Receipt Date: 20101215
  Transmission Date: 20110831
  Serious: Yes (Hospitalization, Other)
  Sender: FDA-Public Use
  Company Number: US-BAYER-201031771NA

PATIENT
  Sex: Female
  Weight: 51.701 kg

DRUGS (8)
  1. YASMIN [Suspect]
     Indication: CONTRACEPTION
     Dosage: UNK UNK, QD
     Dates: start: 20070523, end: 20070825
  2. YAZ [Suspect]
     Indication: PRODUCT USED FOR UNKNOWN INDICATION
     Dates: start: 20070523, end: 20070801
  3. MOTRIN [Concomitant]
  4. IBUPROFEN [Concomitant]
     Dosage: 600 MG, UNK
     Dates: start: 20070824
  5. ALEVE [Concomitant]
  6. CIPROFLOXACIN [Concomitant]
     Dosage: UNK
     Dates: start: 20070101
  7. ADVIL LIQUI-GELS [Concomitant]
  8. IBUPROFEN [Concomitant]
     Dosage: 800 MG, TID

REACTIONS (10)
  - HAEMOPTYSIS [None]
  - TACHYCARDIA [None]
  - DYSPNOEA [None]
  - CHEST PAIN [None]
  - PULMONARY HYPERTENSION [None]
  - CHOLELITHIASIS [None]
  - MUSCULOSKELETAL CHEST PAIN [None]
  - PULMONARY EMBOLISM [None]
  - PLEURAL EFFUSION [None]
  - HEPATIC LESION [None]
